FAERS Safety Report 5827057-5 (Version None)
Quarter: 2008Q3

REPORT INFORMATION
  Report Type: 
  Country: None (occurrence: None)
  Receive Date: 20080730
  Receipt Date: 20080722
  Transmission Date: 20090109
  Serious: Yes (Other)
  Sender: FDA-Public Use
  Company Number: B0359423A

PATIENT
  Age: 54 Year
  Sex: Male

DRUGS (11)
  1. SEROXAT [Suspect]
     Route: 065
     Dates: start: 19990806
  2. HYDROXYZINE [Concomitant]
     Route: 065
  3. VENTOLIN [Concomitant]
     Route: 065
  4. SEREVENT [Concomitant]
     Route: 065
  5. FLIXOTIDE [Concomitant]
     Route: 065
  6. EFFEXOR [Concomitant]
     Dates: start: 20020717
  7. PREDNISOLONE [Concomitant]
     Dates: start: 20000201
  8. METHOTREXATE [Concomitant]
     Dates: end: 20010101
  9. RISEDRONATE SODIUM [Concomitant]
     Indication: OSTEOPOROSIS
     Dates: start: 20020101, end: 20031001
  10. TRENTAL [Concomitant]
  11. AZATHIOPRINE [Concomitant]
     Dates: start: 20020101

REACTIONS (25)
  - AGGRESSION [None]
  - AGITATION [None]
  - ANOREXIA [None]
  - CONFUSIONAL STATE [None]
  - DEPRESSION [None]
  - DIARRHOEA [None]
  - DISTURBANCE IN ATTENTION [None]
  - DIZZINESS [None]
  - DRUG WITHDRAWAL SYNDROME [None]
  - FATIGUE [None]
  - HYPERHIDROSIS [None]
  - INFLUENZA LIKE ILLNESS [None]
  - INTENTIONAL SELF-INJURY [None]
  - LETHARGY [None]
  - LOSS OF LIBIDO [None]
  - MEMORY IMPAIRMENT [None]
  - MOOD SWINGS [None]
  - NAUSEA [None]
  - NIGHTMARE [None]
  - PARAESTHESIA [None]
  - PARANOIA [None]
  - SUICIDAL IDEATION [None]
  - SUICIDE ATTEMPT [None]
  - TREMOR [None]
  - VERTIGO [None]
